FAERS Safety Report 22310174 (Version 1)
Quarter: 2023Q2

REPORT INFORMATION
  Report Type: Spontaneous
  Country: US (occurrence: US)
  Receive Date: 20230511
  Receipt Date: 20230511
  Transmission Date: 20230722
  Serious: No
  Sender: FDA-Public Use
  Company Number: US-SCIEGENP-2023SCSPO00207

PATIENT
  Sex: Female

DRUGS (1)
  1. BUPROPION HYDROCHLORIDE [Suspect]
     Active Substance: BUPROPION HYDROCHLORIDE
     Indication: Product used for unknown indication
     Dosage: ROUGHLY 5 YEARS
     Route: 048

REACTIONS (4)
  - Tremor [Unknown]
  - Agitation [Unknown]
  - Anxiety [Unknown]
  - Product substitution issue [Unknown]
